FAERS Safety Report 4637916-7 (Version None)
Quarter: 2005Q2

REPORT INFORMATION
  Report Type: 
  Country: None (occurrence: None)
  Receive Date: 20050418
  Receipt Date: 20050411
  Transmission Date: 20051028
  Serious: Yes (Death, Other)
  Sender: FDA-Public Use
  Company Number: PHHO2005JP05907

PATIENT
  Age: 73 Year
  Sex: Female

DRUGS (11)
  1. GLEEVEC [Suspect]
     Indication: GASTROINTESTINAL STROMAL TUMOUR
     Dosage: 400 MG, QD
     Route: 048
     Dates: start: 20040128, end: 20040405
  2. GLEEVEC [Suspect]
     Dosage: 400 MG, QD
     Route: 048
     Dates: start: 20040420, end: 20040426
  3. GLEEVEC [Suspect]
     Dosage: NO TREATMENT
     Dates: start: 20040406, end: 20040419
  4. GLEEVEC [Suspect]
     Dosage: 100 MG, TID
     Route: 048
     Dates: start: 20040611, end: 20040620
  5. GLEEVEC [Suspect]
     Dosage: NO TREATMENT
     Dates: start: 20040427, end: 20040610
  6. GLEEVEC [Suspect]
     Dosage: NO TREATMENT
     Dates: start: 20040621, end: 20041025
  7. GLEEVEC [Suspect]
     Dosage: 300 MG, QD
     Route: 048
     Dates: start: 20041026, end: 20041105
  8. GLEEVEC [Suspect]
     Dosage: NO TREATMENT
     Dates: start: 20041106, end: 20041108
  9. GLEEVEC [Suspect]
     Dosage: 300 MG, QD
     Route: 048
     Dates: start: 20041109, end: 20041203
  10. GLEEVEC [Suspect]
     Dosage: NO TREATMENT
     Route: 048
     Dates: start: 20041204, end: 20041212
  11. GLEEVEC [Suspect]
     Dosage: 300 MG, QD
     Route: 048
     Dates: start: 20041213, end: 20050219

REACTIONS (15)
  - ASTHENIA [None]
  - DECREASED APPETITE [None]
  - GASTROINTESTINAL OBSTRUCTION [None]
  - HEPATIC FUNCTION ABNORMAL [None]
  - JAUNDICE [None]
  - MALIGNANT NEOPLASM PROGRESSION [None]
  - NAUSEA [None]
  - OEDEMA [None]
  - OLIGURIA [None]
  - PERICARDIAL EFFUSION [None]
  - PLEURAL EFFUSION [None]
  - PNEUMONIA ASPIRATION [None]
  - PYREXIA [None]
  - STRESS [None]
  - VOMITING [None]
